FAERS Safety Report 19505902 (Version 2)
Quarter: 2021Q3

REPORT INFORMATION
  Report Type: Report from Study
  Country: CA (occurrence: CA)
  Receive Date: 20210708
  Receipt Date: 20210814
  Transmission Date: 20211014
  Serious: Yes (Death, Hospitalization)
  Sender: FDA-Public Use
  Company Number: CA-HLS-202107902

PATIENT
  Sex: Male

DRUGS (14)
  1. DIVALPROEX [Concomitant]
     Active Substance: DIVALPROEX SODIUM
     Dosage: 500MG. 2 TABS AT BEDTIME WITH FOOD
     Route: 048
  2. TRIFLUOPERAZINE [Concomitant]
     Active Substance: TRIFLUOPERAZINE HYDROCHLORIDE
     Dosage: 3.75MG DAILY AT BEDTIME
     Route: 048
  3. TRIFLUOPERAZINE [Concomitant]
     Active Substance: TRIFLUOPERAZINE HYDROCHLORIDE
     Dosage: 2.5MG DAILY
     Route: 048
  4. METOPROLOL. [Concomitant]
     Active Substance: METOPROLOL
     Dosage: 1 TAB TWICE DAILY WITH FOOD
     Route: 048
  5. DUCOSATE SODIUM [Concomitant]
     Dosage: 100MG, 2CAPSULES DAILY
     Route: 048
  6. DESIPRAMINE [Concomitant]
     Active Substance: DESIPRAMINE
     Dosage: 25MG. 2 TABS AT BEDTIME
     Route: 065
  7. TRIFLUOPERAZINE [Concomitant]
     Active Substance: TRIFLUOPERAZINE HYDROCHLORIDE
     Dosage: 4MG DAILY
     Route: 048
  8. LITHIUM. [Concomitant]
     Active Substance: LITHIUM
     Dosage: 180MG CAPSULES EVERY 2 DAYS.
     Route: 048
  9. MOMETASONE [Concomitant]
     Active Substance: MOMETASONE
     Dosage: 0.1% CREAM. TWICE DAILY IF NEEDED
     Route: 065
  10. TRIFLUOPERAZINE [Concomitant]
     Active Substance: TRIFLUOPERAZINE HYDROCHLORIDE
     Dosage: 2MG DAILY
     Route: 048
  11. CLOZARIL [Suspect]
     Active Substance: CLOZAPINE
     Indication: SCHIZOAFFECTIVE DISORDER BIPOLAR TYPE
     Dosage: 300 MG TWICE DAILY AND 50 MG AT BEDTIME
     Route: 048
     Dates: start: 20000803
  12. ACETAMINOPHEN. [Concomitant]
     Active Substance: ACETAMINOPHEN
     Dosage: 325MG. 1 TAB THREE TIMES A DAY. MAX: 4 G DAILY
     Route: 048
  13. BISACODYL. [Concomitant]
     Active Substance: BISACODYL
     Dosage: 200MG 2 TABS EVERY DAY AT BEDTIME
     Route: 048
  14. LITHIUM. [Concomitant]
     Active Substance: LITHIUM
     Dosage: 300MG EVERY 2 DAYS
     Route: 048

REACTIONS (3)
  - Dermal cyst [Unknown]
  - Psychiatric decompensation [Unknown]
  - Death [Fatal]
